FAERS Safety Report 20144731 (Version 2)
Quarter: 2022Q1

REPORT INFORMATION
  Report Type: Report from Study
  Country: US (occurrence: US)
  Receive Date: 20211203
  Receipt Date: 20220204
  Transmission Date: 20220423
  Serious: Yes (Other)
  Sender: FDA-Public Use
  Company Number: US-TEVA-2021-US-1982921

PATIENT
  Age: 27 Year
  Sex: Female

DRUGS (2)
  1. CLARAVIS [Suspect]
     Active Substance: ISOTRETINOIN
     Dosage: 100 MILLIGRAM DAILY;
     Route: 065
     Dates: start: 20121102
  2. CLARAVIS [Suspect]
     Active Substance: ISOTRETINOIN
     Dosage: 100 MILLIGRAM DAILY;
     Route: 065
     Dates: start: 20121102

REACTIONS (1)
  - Unintended pregnancy [Unknown]
